FAERS Safety Report 9858522 (Version 3)
Quarter: 2014Q1

REPORT INFORMATION
  Report Type: Spontaneous
  Country: CO (occurrence: CO)
  Receive Date: 20140131
  Receipt Date: 20140214
  Transmission Date: 20141002
  Serious: Yes (Other)
  Sender: FDA-Public Use
  Company Number: CO-NOVOPROD-398559

PATIENT
  Age: 46 Year
  Sex: Female
  Weight: 66 kg

DRUGS (7)
  1. LEVEMIR FLEXPEN [Suspect]
     Indication: TYPE 2 DIABETES MELLITUS
     Dosage: 40 IU, QD
     Route: 065
     Dates: start: 20140115
  2. LEVEMIR FLEXPEN [Suspect]
     Dosage: 80 IU, QD
     Route: 065
     Dates: start: 20140122
  3. NOVORAPID FLEXPEN [Suspect]
     Indication: TYPE 2 DIABETES MELLITUS
     Dosage: 55 IU, QD
     Route: 065
     Dates: start: 20140115
  4. ACETYLSALICYLIC ACID [Concomitant]
     Dosage: 100 MG 1 TABLET/DAY
  5. METFORMIN [Concomitant]
     Dosage: 350 MG, 2 TABLETS/DAY
     Dates: start: 2008
  6. CARBAMAZEPINE [Concomitant]
     Dosage: 200 MG, 1 TABLET/DAY
  7. NPH INSULIN [Concomitant]
     Dosage: 55 IU EVERY 12 HOURS

REACTIONS (2)
  - Cellulitis [Recovering/Resolving]
  - Injection site hypersensitivity [Recovering/Resolving]
